FAERS Safety Report 6473918-6 (Version None)
Quarter: 2009Q4

REPORT INFORMATION
  Report Type: 
  Country: None (occurrence: None)
  Receive Date: 20091204
  Receipt Date: 20090929
  Transmission Date: 20100525
  Serious: Yes (Other)
  Sender: FDA-Public Use
  Company Number: A0809556A

PATIENT
  Age: 23 Year
  Sex: Male

DRUGS (4)
  1. LAMICTAL [Suspect]
     Dosage: 100MG TWICE PER DAY
     Route: 048
     Dates: start: 20090828
  2. KLONOPIN [Suspect]
  3. TRILEPTAL [Concomitant]
  4. ZARONTIN [Concomitant]

REACTIONS (5)
  - DRUG INEFFECTIVE [None]
  - GRAND MAL CONVULSION [None]
  - HEADACHE [None]
  - NAUSEA [None]
  - VOMITING [None]
